FAERS Safety Report 4289230-X (Version None)
Quarter: 2004Q1

REPORT INFORMATION
  Report Type: 
  Country: None (occurrence: None)
  Receive Date: 20040206
  Receipt Date: 20040129
  Transmission Date: 20041129
  Serious: Yes (Other)
  Sender: FDA-Public Use
  Company Number: NSADSS2002046662

PATIENT
  Age: 30 Month
  Sex: Female
  Weight: 8.4 kg

DRUGS (2)
  1. TOPAMAX [Suspect]
     Indication: CONVULSION
     Dosage: 15 MG, ORAL; IN 1 DAY, ORAL
     Route: 048
     Dates: start: 20001023, end: 20021215
  2. REGLAN [Concomitant]

REACTIONS (4)
  - CONGENITAL APLASTIC ANAEMIA [None]
  - FAILURE TO THRIVE [None]
  - FANCONI SYNDROME ACQUIRED [None]
  - PCO2 DECREASED [None]
